FAERS Safety Report 17561304 (Version 1)
Quarter: 2020Q1

REPORT INFORMATION
  Report Type: Spontaneous
  Country: US (occurrence: US)
  Receive Date: 20200312
  Receipt Date: 20200312
  Transmission Date: 20200409
  Serious: Yes (Hospitalization)
  Sender: FDA-Public Use
  Company Number: None

PATIENT
  Age: 52 Year
  Sex: Female

DRUGS (1)
  1. CAPECITABINE TAB 150MG [Suspect]
     Active Substance: CAPECITABINE
     Dosage: ?          OTHER DOSE:150;?
     Route: 048
     Dates: start: 20200302

REACTIONS (2)
  - Sepsis [None]
  - Cellulitis [None]

NARRATIVE: CASE EVENT DATE: 20200303
